FAERS Safety Report 16859844 (Version 2)
Quarter: 2019Q4

REPORT INFORMATION
  Report Type: Spontaneous
  Country: US (occurrence: US)
  Receive Date: 20190927
  Receipt Date: 20191114
  Transmission Date: 20200122
  Serious: No
  Sender: FDA-Public Use
  Company Number: US-DRREDDYS-USA/USA/19/0114460

PATIENT
  Age: 78 Year
  Sex: Female

DRUGS (4)
  1. FLUCONAZOLE. [Suspect]
     Active Substance: FLUCONAZOLE
     Indication: ARTHRITIS INFECTIVE
     Route: 048
     Dates: start: 2018
  2. FUNGIZONE [Concomitant]
     Active Substance: AMPHOTERICIN B
     Indication: CANDIDA INFECTION
  3. FLUCONAZOLE. [Suspect]
     Active Substance: FLUCONAZOLE
     Indication: CANDIDA INFECTION
     Route: 048
     Dates: start: 2018
  4. FUNGIZONE [Concomitant]
     Active Substance: AMPHOTERICIN B
     Indication: ARTHRITIS INFECTIVE
     Dosage: 40 G PALACOS CEMENT MIXED WITH 100 MG OF HEAT-STABLE POWDERED FUNGIZONE
     Dates: start: 2018

REACTIONS (3)
  - Erythema [Unknown]
  - Purulent discharge [None]
  - Alopecia [Unknown]
